FAERS Safety Report 8608644-8 (Version None)
Quarter: 2012Q3

REPORT INFORMATION
  Report Type: 
  Country: None (occurrence: None)
  Receive Date: 20120821
  Receipt Date: 20120813
  Transmission Date: 20120928
  Serious: Yes (Death, Other)
  Sender: FDA-Public Use
  Company Number: US-SANOFI-AVENTIS-2012SA058397

PATIENT
  Age: 72 Year
  Sex: Female
  Weight: 66 kg

DRUGS (12)
  1. MAGNESIUM [Concomitant]
     Dates: start: 20120411
  2. SPIRIVA [Concomitant]
     Dates: start: 20060101
  3. PREVACID [Concomitant]
     Dates: start: 20120201
  4. TARCEVA [Suspect]
     Indication: NON-SMALL CELL LUNG CANCER
     Route: 048
     Dates: start: 20120607, end: 20120712
  5. CYMBALTA [Concomitant]
     Dates: start: 20120523
  6. OXYCODONE HCL [Concomitant]
     Dates: start: 20120606
  7. TARCEVA [Suspect]
     Route: 048
     Dates: end: 20120801
  8. ANTINEOPLASTIC AGENTS [Suspect]
     Indication: NON-SMALL CELL LUNG CANCER
     Route: 048
     Dates: start: 20120607, end: 20120712
  9. ANTINEOPLASTIC AGENTS [Suspect]
     Route: 048
     Dates: end: 20120726
  10. AMBIEN [Suspect]
     Indication: INSOMNIA
  11. OXYCONTIN [Concomitant]
     Dates: start: 20120606
  12. ADVAIR [Concomitant]
     Dates: start: 20111101

REACTIONS (28)
  - PULMONARY EMBOLISM [None]
  - GLYCOSYLATED HAEMOGLOBIN INCREASED [None]
  - HYPOMAGNESAEMIA [None]
  - HYPOTENSION [None]
  - FAILURE TO THRIVE [None]
  - BLOOD CHLORIDE DECREASED [None]
  - PNEUMOPERICARDIUM [None]
  - RASH MACULO-PAPULAR [None]
  - DECREASED APPETITE [None]
  - ATELECTASIS [None]
  - NAUSEA [None]
  - BLOOD LACTIC ACID INCREASED [None]
  - HYPERGLYCAEMIA [None]
  - HEART RATE DECREASED [None]
  - HYPOCALCAEMIA [None]
  - BLOOD BILIRUBIN INCREASED [None]
  - RESPIRATORY FAILURE [None]
  - DYSPNOEA [None]
  - CHEST PAIN [None]
  - BLOOD ALBUMIN DECREASED [None]
  - PLEURAL EFFUSION [None]
  - FATIGUE [None]
  - HYPOKALAEMIA [None]
  - METABOLIC ACIDOSIS [None]
  - OEDEMA PERIPHERAL [None]
  - CARBON DIOXIDE DECREASED [None]
  - RASH PRURITIC [None]
  - CONFUSIONAL STATE [None]
